FAERS Safety Report 9880633 (Version 1)
Quarter: 2014Q1

REPORT INFORMATION
  Report Type: Spontaneous
  Country: US (occurrence: None)
  Receive Date: 20140206
  Receipt Date: 20140206
  Transmission Date: 20141002
  Serious: Yes (Life-Threatening)
  Sender: FDA-Public Use
  Company Number: None

PATIENT
  Age: 31 Year
  Sex: Male
  Weight: 101.61 kg

DRUGS (1)
  1. VANCOMYCIN [Suspect]
     Indication: ARTHRITIS BACTERIAL
     Route: 042
     Dates: start: 20131018

REACTIONS (2)
  - Pruritus [None]
  - Rash [None]
